FAERS Safety Report 8514221 (Version 6)
Quarter: 2013Q2

REPORT INFORMATION
  Report Type: Spontaneous
  Country: US (occurrence: US)
  Receive Date: 20120416
  Receipt Date: 20130419
  Transmission Date: 20140414
  Serious: Yes (Hospitalization)
  Sender: FDA-Public Use
  Company Number: US-PFIZER INC-2012090504

PATIENT
  Age: 80 Year
  Sex: Female
  Weight: 111 kg

DRUGS (6)
  1. LIPITOR [Suspect]
     Indication: BLOOD CHOLESTEROL INCREASED
     Dosage: UNK
  2. LIPITOR [Suspect]
     Dosage: UNK
  3. LIPITOR [Suspect]
     Dosage: 40 MG, DAILY
  4. LIPITOR [Suspect]
  5. LISINOPRIL [Concomitant]
     Indication: HYPERTENSION
     Dosage: 5 MG, DAILY
  6. ATENOLOL [Concomitant]
     Indication: HYPERTENSION
     Dosage: 25 MG, DAILY

REACTIONS (4)
  - Memory impairment [Unknown]
  - Dysphonia [Unknown]
  - Cough [Unknown]
  - Foreign body [Unknown]
